FAERS Safety Report 8314342-0 (Version None)
Quarter: 2012Q2

REPORT INFORMATION
  Report Type: 
  Country: None (occurrence: None)
  Receive Date: 20120426
  Receipt Date: 20110808
  Transmission Date: 20120825
  Serious: Yes (Other)
  Sender: FDA-Public Use
  Company Number: US-TEVA-US023534

PATIENT
  Sex: Female

DRUGS (8)
  1. LAMICTAL [Concomitant]
     Dosage: 100 MILLIGRAM;
     Route: 048
  2. ASCORBIC ACID [Concomitant]
     Route: 048
  3. SEROQUEL [Concomitant]
     Dosage: 25 MILLIGRAM;
     Route: 048
  4. CALCIUM [Concomitant]
     Route: 048
  5. CELEXA [Concomitant]
     Dosage: 25 MILLIGRAM;
     Route: 048
  6. PROVIGIL [Suspect]
     Route: 048
     Dates: start: 20080501
  7. ORTHO TRI-CYCLEN LO [Concomitant]
     Route: 048
  8. FISH OIL [Concomitant]
     Route: 048

REACTIONS (5)
  - NAUSEA [None]
  - ANGER [None]
  - IMPATIENCE [None]
  - DEPRESSION [None]
  - MANIA [None]
